FAERS Safety Report 9275366 (Version 1)
Quarter: 2013Q2

REPORT INFORMATION
  Report Type: Spontaneous
  Country: DE (occurrence: None)
  Receive Date: 20130430
  Receipt Date: 20130430
  Transmission Date: 20140414
  Serious: Yes (Other)
  Sender: FDA-Public Use
  Company Number: DSJ-2013-08555

PATIENT
  Age: 38 Year
  Sex: Female

DRUGS (1)
  1. OLMESARTAN MEDOXOMIL [Suspect]
     Indication: CEREBROVASCULAR ACCIDENT

REACTIONS (2)
  - Maternal exposure during pregnancy [None]
  - Oligohydramnios [None]
